FAERS Safety Report 12619732 (Version 5)
Quarter: 2016Q4

REPORT INFORMATION
  Report Type: Report from Study
  Country: US (occurrence: US)
  Receive Date: 20160803
  Receipt Date: 20161215
  Transmission Date: 20170207
  Serious: No
  Sender: FDA-Public Use
  Company Number: US-AMGEN-USASL2016095390

PATIENT
  Age: 50 Year
  Sex: Female

DRUGS (2)
  1. ENBREL [Suspect]
     Active Substance: ETANERCEPT
     Indication: RHEUMATOID ARTHRITIS
     Dosage: 50 MG, QWK
     Route: 058
     Dates: start: 20160406
  2. ADVIL [Concomitant]
     Active Substance: IBUPROFEN
     Dosage: UNK

REACTIONS (10)
  - Upper respiratory tract infection [Unknown]
  - Epistaxis [Not Recovered/Not Resolved]
  - Furuncle [Unknown]
  - Scab [Not Recovered/Not Resolved]
  - Sinusitis [Unknown]
  - Nasal discharge discolouration [Not Recovered/Not Resolved]
  - Arthralgia [Unknown]
  - Chronic obstructive pulmonary disease [Unknown]
  - Rhinorrhoea [Not Recovered/Not Resolved]
  - Fatigue [Unknown]

NARRATIVE: CASE EVENT DATE: 2016
